FAERS Safety Report 6695389-7 (Version None)
Quarter: 2010Q2

REPORT INFORMATION
  Report Type: 
  Country: None (occurrence: None)
  Receive Date: 20100423
  Receipt Date: 20100423
  Transmission Date: 20101027
  Serious: Yes (Hospitalization)
  Sender: FDA-Public Use
  Company Number: None

PATIENT
  Age: 47 Year
  Sex: Male
  Weight: 104.5 kg

DRUGS (5)
  1. ASPIRIN [Suspect]
     Indication: ATRIAL FIBRILLATION
     Dosage: 81 MG DAILY PO RECENT INCREASE
     Route: 048
  2. COUMADIN [Suspect]
     Indication: ATRIAL FIBRILLATION
     Dosage: 10 MG DAILY PO CHRONIC
     Route: 048
  3. METOPROLOL [Concomitant]
  4. LISINOPRIL [Concomitant]
  5. MULTAQ [Concomitant]

REACTIONS (8)
  - ANTICOAGULATION DRUG LEVEL ABOVE THERAPEUTIC [None]
  - BLOOD CREATINE INCREASED [None]
  - BLOOD GLUCOSE INCREASED [None]
  - BLOOD UREA INCREASED [None]
  - HAEMORRHAGE [None]
  - HYPOTENSION [None]
  - MELAENA [None]
  - OESOPHAGEAL ULCER [None]
